FAERS Safety Report 18971883 (Version 2)
Quarter: 2021Q1

REPORT INFORMATION
  Report Type: Spontaneous
  Country: US (occurrence: US)
  Receive Date: 20210305
  Receipt Date: 20210321
  Transmission Date: 20210420
  Serious: No
  Sender: FDA-Public Use
  Company Number: US-AMGEN-USASP2021032089

PATIENT
  Age: 66 Year
  Sex: Male
  Weight: 76.5 kg

DRUGS (5)
  1. DOCETAXEL. [Concomitant]
     Active Substance: DOCETAXEL
     Indication: PROSTATE CANCER
     Dosage: UNK UNK, Q3WK
  2. NEULASTA [Suspect]
     Active Substance: PEGFILGRASTIM
     Dosage: 6 MILLIGRAM, CYCLICAL
     Route: 065
  3. CARBOPLATIN. [Concomitant]
     Active Substance: CARBOPLATIN
     Indication: PROSTATE CANCER
     Dosage: UNK UNK, Q3WK
  4. NEULASTA [Suspect]
     Active Substance: PEGFILGRASTIM
     Dosage: 6 MILLIGRAM, CYCLICAL
     Route: 065
  5. NEULASTA [Suspect]
     Active Substance: PEGFILGRASTIM
     Indication: NEUTROPENIA
     Dosage: 6 MILLIGRAM, CYCLICAL
     Route: 065

REACTIONS (1)
  - Unintentional medical device removal [Unknown]

NARRATIVE: CASE EVENT DATE: 20210224
